FAERS Safety Report 12755690 (Version 2)
Quarter: 2016Q4

REPORT INFORMATION
  Report Type: Spontaneous
  Country: US (occurrence: US)
  Receive Date: 20160916
  Receipt Date: 20161028
  Transmission Date: 20170207
  Serious: No
  Sender: FDA-Public Use
  Company Number: US-PFIZER INC-2016417117

PATIENT
  Age: 48 Year
  Sex: Female
  Weight: 58.6 kg

DRUGS (2)
  1. FASLODEX [Suspect]
     Active Substance: FULVESTRANT
     Indication: NEOPLASM MALIGNANT
     Dosage: INJECTION ONCE EVER MONTH
     Dates: start: 201604, end: 20160829
  2. IBRANCE [Suspect]
     Active Substance: PALBOCICLIB
     Indication: BREAST CANCER METASTATIC
     Dosage: 100 MG, CYCLIC(ONCE A DAY FOR 21 DAYS AND STOP FOR 7 DAYS)
     Route: 048
     Dates: start: 201604, end: 20160829

REACTIONS (3)
  - Disease progression [Unknown]
  - Breast cancer metastatic [Unknown]
  - Visual impairment [Unknown]

NARRATIVE: CASE EVENT DATE: 201604
